FAERS Safety Report 10150191 (Version 1)
Quarter: 2014Q2

REPORT INFORMATION
  Report Type: Spontaneous
  Country: US (occurrence: US)
  Receive Date: 20140502
  Receipt Date: 20140502
  Transmission Date: 20141212
  Serious: Yes (Other)
  Sender: FDA-Public Use
  Company Number: US-TEVA-479180USA

PATIENT
  Age: 32 Year
  Sex: Female
  Weight: 78.09 kg

DRUGS (1)
  1. PARAGARD 380A [Suspect]
     Indication: CONTRACEPTION
     Route: 015
     Dates: start: 20140120, end: 20140422

REACTIONS (3)
  - Device dislocation [Recovered/Resolved]
  - Smear cervix abnormal [Unknown]
  - Cervical dysplasia [Not Recovered/Not Resolved]
